FAERS Safety Report 12392956 (Version 3)
Quarter: 2016Q3

REPORT INFORMATION
  Report Type: Spontaneous
  Country: JP (occurrence: JP)
  Receive Date: 20160523
  Receipt Date: 20160704
  Transmission Date: 20161109
  Serious: Yes (Death, Life-Threatening, Other)
  Sender: FDA-Public Use
  Company Number: JP-ROCHE-1762079

PATIENT
  Age: 68 Year
  Sex: Female
  Weight: 56 kg

DRUGS (3)
  1. HYPEN (JAPAN) [Concomitant]
     Indication: BREAST CANCER
     Route: 048
     Dates: start: 20150803, end: 20160608
  2. XELODA [Suspect]
     Active Substance: CAPECITABINE
     Indication: BREAST CANCER
     Dosage: 3 WEEKS ADMINISTRATION FOLLOWED BY 1 WEEK REST
     Route: 048
     Dates: start: 20150208, end: 20150511
  3. OXYCONTIN [Suspect]
     Active Substance: OXYCODONE HYDROCHLORIDE
     Indication: ABDOMINAL PAIN
     Dosage: THE FRACTIONATION DOSE FREQUENCY IS UNCERTAIN.
     Route: 065
     Dates: start: 20160608, end: 20160608

REACTIONS (11)
  - Metastases to peritoneum [Fatal]
  - Malignant pleural effusion [Not Recovered/Not Resolved]
  - Oedematous kidney [Unknown]
  - Dehydration [Recovered/Resolved]
  - Acute kidney injury [Fatal]
  - Diarrhoea [Recovering/Resolving]
  - Ureteric stenosis [Unknown]
  - Metastases to pleura [Fatal]
  - Hydronephrosis [Fatal]
  - Breast cancer [Fatal]
  - Abdominal pain [Recovering/Resolving]

NARRATIVE: CASE EVENT DATE: 201604
